FAERS Safety Report 4568979-5 (Version None)
Quarter: 2005Q1

REPORT INFORMATION
  Report Type: 
  Country: None (occurrence: None)
  Receive Date: 20050203
  Receipt Date: 20050125
  Transmission Date: 20050727
  Serious: Yes (Disabling)
  Sender: FDA-Public Use
  Company Number: CH-BRISTOL-MYERS SQUIBB COMPANY-12841714

PATIENT
  Age: 36 Year
  Sex: Male

DRUGS (5)
  1. REYATAZ [Suspect]
     Indication: ACQUIRED IMMUNODEFICIENCY SYNDROME
     Route: 048
     Dates: start: 20040701
  2. NORVIR [Suspect]
     Indication: ACQUIRED IMMUNODEFICIENCY SYNDROME
     Route: 048
     Dates: start: 20040701
  3. VIREAD [Concomitant]
  4. LAMIVUDINE [Concomitant]
  5. INVIRASE [Concomitant]

REACTIONS (1)
  - OSTEONECROSIS [None]
